FAERS Safety Report 7375157-3 (Version None)
Quarter: 2011Q1

REPORT INFORMATION
  Report Type: 
  Country: None (occurrence: None)
  Receive Date: 20110325
  Receipt Date: 20110324
  Transmission Date: 20110831
  Serious: Yes (Other)
  Sender: FDA-Public Use
  Company Number: RO-PFIZER INC-2011058913

PATIENT
  Age: 80 Year
  Sex: Male
  Weight: 77 kg

DRUGS (11)
  1. CORDARONE [Concomitant]
     Indication: HYPERTENSION
  2. PRESTARIUM [Concomitant]
     Indication: HYPERTENSION
  3. XALATAN [Suspect]
     Indication: GLAUCOMA
     Dosage: 1 EYE DROP, 2X/DAY, IN EACH EYE
     Route: 047
     Dates: start: 20110125, end: 20110128
  4. PRESTARIUM [Concomitant]
     Indication: ATRIAL FIBRILLATION
     Dosage: UNK
  5. ASPENTER [Concomitant]
     Indication: ATRIAL FIBRILLATION
     Dosage: UNK
  6. ASPENTER [Concomitant]
     Indication: HYPERTENSION
  7. MANNITOL [Concomitant]
     Indication: INTRAOCULAR PRESSURE INCREASED
     Dosage: UNK
     Route: 041
     Dates: start: 20110124, end: 20110125
  8. TRIMETAZIDINE [Concomitant]
     Indication: ATRIAL FIBRILLATION
     Dosage: UNK
  9. TRIMETAZIDINE [Concomitant]
     Indication: HYPERTENSION
  10. PILOCARPINE [Concomitant]
     Indication: INTRAOCULAR PRESSURE INCREASED
     Dosage: UNK
     Route: 047
     Dates: start: 20110124, end: 20110125
  11. CORDARONE [Concomitant]
     Indication: ATRIAL FIBRILLATION
     Dosage: UNK

REACTIONS (1)
  - INTRAOCULAR PRESSURE INCREASED [None]
